FAERS Safety Report 5873836-8 (Version None)
Quarter: 2008Q3

REPORT INFORMATION
  Report Type: 
  Country: None (occurrence: None)
  Receive Date: 20080903
  Receipt Date: 20080903
  Transmission Date: 20090109
  Serious: Yes (Other)
  Sender: FDA-Public Use
  Company Number: None

PATIENT
  Age: 50 Year
  Sex: Female
  Weight: 77.1115 kg

DRUGS (2)
  1. VYTORIN [Suspect]
     Indication: BLOOD CHOLESTEROL INCREASED
     Dosage: 20/10 MG ONCE DAILY PO
     Route: 048
     Dates: start: 20041101, end: 20051201
  2. VYTORIN [Suspect]
     Indication: BLOOD CHOLESTEROL INCREASED
     Dosage: 10/10 MG ONCE DAILY PO
     Route: 048
     Dates: start: 20051201, end: 20060601

REACTIONS (1)
  - DYSHIDROSIS [None]
